FAERS Safety Report 15911747 (Version 1)
Quarter: 2019Q1

REPORT INFORMATION
  Report Type: Spontaneous
  Country: US (occurrence: US)
  Receive Date: 20190204
  Receipt Date: 20190204
  Transmission Date: 20190417
  Serious: No
  Sender: FDA-Public Use
  Company Number: US-ABBVIE-18K-163-2309144-00

PATIENT

DRUGS (1)
  1. HUMIRA [Suspect]
     Active Substance: ADALIMUMAB
     Indication: HIDRADENITIS
     Route: 058

REACTIONS (7)
  - Drug ineffective [Unknown]
  - Neck mass [Unknown]
  - Hidradenitis [Unknown]
  - Antisocial behaviour [Unknown]
  - Emotional disorder [Unknown]
  - Secretion discharge [Unknown]
  - Fear [Unknown]

NARRATIVE: CASE EVENT DATE: 20180324
